FAERS Safety Report 5150088-8 (Version None)
Quarter: 2006Q4

REPORT INFORMATION
  Report Type: 
  Country: None (occurrence: None)
  Receive Date: 20061113
  Receipt Date: 20061103
  Transmission Date: 20070319
  Serious: Yes (Death)
  Sender: FDA-Public Use
  Company Number: US-ABBOTT-06P-163-0349049-00

PATIENT
  Age: 38 Year
  Sex: Female
  Weight: 72.64 kg

DRUGS (1)
  1. DILAUDID 8 MG [Suspect]
     Indication: PAIN
     Route: 048
     Dates: start: 20050101, end: 20060601

REACTIONS (1)
  - PULMONARY HAEMORRHAGE [None]
